FAERS Safety Report 17056903 (Version 2)
Quarter: 2020Q3

REPORT INFORMATION
  Report Type: Other
  Country: CA (occurrence: CA)
  Receive Date: 20191121
  Receipt Date: 20200921
  Transmission Date: 20201102
  Serious: Yes (Hospitalization, Other)
  Sender: FDA-Public Use
  Company Number: CA-APOTEX-2019AP024833

PATIENT
  Age: 71 Year
  Sex: Female

DRUGS (54)
  1. DILTIAZEM. [Suspect]
     Active Substance: DILTIAZEM
     Indication: CORONARY ARTERY DISEASE
     Dosage: UNK
     Route: 065
  2. FUROSEMIDE. [Suspect]
     Active Substance: FUROSEMIDE
     Indication: OEDEMA
     Dosage: 40 MG, QD
     Route: 048
  3. ACEBUTOLOL [Suspect]
     Active Substance: ACEBUTOLOL
     Dosage: 200 MILLIGRAM, QD
     Route: 065
  4. NITROGLYCERIN. [Suspect]
     Active Substance: NITROGLYCERIN
     Indication: CORONARY ARTERY DISEASE
     Dosage: UNK
     Route: 062
  5. LACTULOSE. [Concomitant]
     Active Substance: LACTULOSE
     Indication: CONSTIPATION
     Dosage: 15 ML, QD
     Route: 065
  6. TIOTROPIUM [Concomitant]
     Active Substance: TIOTROPIUM
     Indication: CHRONIC OBSTRUCTIVE PULMONARY DISEASE
     Dosage: 18 ?G, QD
     Route: 065
  7. POTASSIUM [Concomitant]
     Active Substance: POTASSIUM
     Indication: PRODUCT USED FOR UNKNOWN INDICATION
     Dosage: UNK
     Route: 065
  8. ACEBUTOLOL [Concomitant]
     Active Substance: ACEBUTOLOL
     Indication: HYPERTENSION
     Dosage: 240 MG, QD
     Route: 065
  9. ACEBUTOLOL [Concomitant]
     Active Substance: ACEBUTOLOL
     Indication: CORONARY ARTERY DISEASE
     Dosage: 200 MG, BID
     Route: 065
  10. ACEBUTOLOL [Concomitant]
     Active Substance: ACEBUTOLOL
     Indication: ANGINA PECTORIS
  11. GALANTAMINE. [Concomitant]
     Active Substance: GALANTAMINE
     Indication: DEMENTIA
     Dosage: 16 MG, QD
     Route: 065
  12. SODIUM BENZOATE [Concomitant]
     Active Substance: SODIUM BENZOATE
     Indication: PRODUCT USED FOR UNKNOWN INDICATION
     Dosage: UNK
     Route: 065
  13. DILTIAZEM. [Suspect]
     Active Substance: DILTIAZEM
     Indication: ANGINA PECTORIS
     Dosage: 360 MILLIGRAM, QD
     Route: 048
  14. NITROGLYCERIN. [Suspect]
     Active Substance: NITROGLYCERIN
     Indication: CORONARY ARTERY DISEASE
     Dosage: UNK
     Route: 065
  15. OXAZEPAM. [Suspect]
     Active Substance: OXAZEPAM
     Indication: INSOMNIA
     Dosage: 15 MILLIGRAM, QD
     Route: 048
  16. ACETAMINOPHEN. [Concomitant]
     Active Substance: ACETAMINOPHEN
     Indication: FIBROMYALGIA
     Dosage: 650 MG, UNK
     Route: 065
  17. GLUCOSAMINE [Concomitant]
     Active Substance: GLUCOSAMINE
     Indication: ARTHRITIS
     Dosage: 500 MG, BID
     Route: 065
  18. CARBAMAZEPINE. [Suspect]
     Active Substance: CARBAMAZEPINE
     Indication: SEIZURE
     Dosage: 100 MILLIGRAM, QD
     Route: 065
  19. CARBAMAZEPINE. [Suspect]
     Active Substance: CARBAMAZEPINE
     Dosage: 400 MILLIGRAM, QD
     Route: 065
  20. ACEBUTOLOL [Suspect]
     Active Substance: ACEBUTOLOL
     Indication: CORONARY ARTERY DISEASE
     Dosage: 400 MILLIGRAM, QD
     Route: 065
  21. NITROGLYCERIN. [Suspect]
     Active Substance: NITROGLYCERIN
     Indication: CORONARY ARTERY DISEASE
     Dosage: UNK
     Route: 042
  22. LEVOTHYROXINE. [Concomitant]
     Active Substance: LEVOTHYROXINE
     Indication: THYROID DISORDER
     Dosage: 0.88 MG, QD
     Route: 065
  23. QUINAPRIL. [Concomitant]
     Active Substance: QUINAPRIL
     Indication: CORONARY ARTERY DISEASE
     Dosage: 40 MG, QD
     Route: 065
  24. SALBUTAMOL [Concomitant]
     Active Substance: ALBUTEROL
     Indication: PRODUCT USED FOR UNKNOWN INDICATION
     Dosage: 100 ?G, UNK
     Route: 065
  25. ACETYLSALICYLIC ACID W/DIPYRIDAMOLE [Concomitant]
     Indication: CEREBROVASCULAR ACCIDENT
     Dosage: 25 MG, BID
     Route: 065
  26. CYCLOBENZAPRINE. [Suspect]
     Active Substance: CYCLOBENZAPRINE
     Indication: FIBROMYALGIA
     Dosage: 5 MG, QID
     Route: 048
  27. AMLODIPINE [Concomitant]
     Active Substance: AMLODIPINE BESYLATE
     Indication: ANGINA PECTORIS
  28. LEVOTHYROXINE. [Concomitant]
     Active Substance: LEVOTHYROXINE
     Indication: POST PROCEDURAL HYPOTHYROIDISM
  29. TIOTROPIUM [Concomitant]
     Active Substance: TIOTROPIUM
     Indication: ASTHMA
  30. VACCINIUM MACROCARPON [Concomitant]
     Active Substance: CRANBERRY
     Indication: PRODUCT USED FOR UNKNOWN INDICATION
     Dosage: UNK
     Route: 065
  31. DILTIAZEM. [Suspect]
     Active Substance: DILTIAZEM
     Indication: HYPERTENSION
     Dosage: 240 MILLIGRAM, QD
     Route: 065
  32. ACEBUTOLOL [Suspect]
     Active Substance: ACEBUTOLOL
     Indication: HYPERTENSION
     Dosage: 200 MILLIGRAM, Q.O.D.
     Route: 065
  33. ACEBUTOLOL [Suspect]
     Active Substance: ACEBUTOLOL
     Indication: ANGINA PECTORIS
     Dosage: 240 MILLIGRAM, QD
     Route: 065
  34. AMLODIPINE [Suspect]
     Active Substance: AMLODIPINE BESYLATE
     Indication: CORONARY ARTERY DISEASE
     Dosage: 5 MILLIGRAM, QD
     Route: 065
  35. ACETAMINOPHEN W/CAFFEINE [Concomitant]
     Active Substance: ACETAMINOPHEN\CAFFEINE
     Indication: FIBROMYALGIA
     Dosage: 650 MG, UNK
     Route: 065
  36. BISACODYL. [Concomitant]
     Active Substance: BISACODYL
     Indication: CONSTIPATION
     Dosage: UNK
     Route: 065
  37. ASCORBIC ACID W/VACCINIUM MACROCARPON [Concomitant]
     Indication: BLADDER ABLATION
     Dosage: 500 MG, TID
     Route: 065
  38. MAGNESIUM HYDROXIDE. [Concomitant]
     Active Substance: MAGNESIUM HYDROXIDE
     Indication: CONSTIPATION
     Dosage: 311 MG, UNK
     Route: 065
  39. OMEPRAZOLE. [Concomitant]
     Active Substance: OMEPRAZOLE
     Indication: DUODENAL ULCER
     Dosage: 20 MG, QD
     Route: 065
  40. OXAZEPAM. [Concomitant]
     Active Substance: OXAZEPAM
     Indication: INSOMNIA
     Dosage: 15 MG, UNK
     Route: 048
  41. AMITRIPTYLINE [Suspect]
     Active Substance: AMITRIPTYLINE
     Indication: INSOMNIA
     Dosage: 75 MG, UNK
     Route: 065
  42. CYCLOBENZAPRINE. [Suspect]
     Active Substance: CYCLOBENZAPRINE
     Dosage: 15 MILLIGRAM, QD
     Route: 065
  43. CYCLOBENZAPRINE. [Suspect]
     Active Substance: CYCLOBENZAPRINE
     Dosage: 5 MILLIGRAM, QD
     Route: 065
  44. AMLODIPINE [Suspect]
     Active Substance: AMLODIPINE BESYLATE
     Indication: ANGINA PECTORIS
     Dosage: UNK
     Route: 065
  45. NITROGLYCERIN. [Suspect]
     Active Substance: NITROGLYCERIN
     Dosage: 0.4 MILLIGRAM
     Route: 065
  46. QUINAPRIL. [Suspect]
     Active Substance: QUINAPRIL
     Indication: CORONARY ARTERY DISEASE
     Dosage: 40 MILLIGRAM, QD
     Route: 065
  47. AMLODIPINE [Concomitant]
     Active Substance: AMLODIPINE BESYLATE
     Indication: HYPERTENSION
     Dosage: 5 MG, QD
     Route: 065
  48. FIBRE SOLUBLE W/GLYCEROL/PHOSPHORIC ACID/POTA [Concomitant]
     Indication: CONSTIPATION
     Dosage: UNK
     Route: 065
  49. MORPHINE SULFATE. [Suspect]
     Active Substance: MORPHINE SULFATE
     Indication: FIBROMYALGIA
     Dosage: 10 MG, UNK
     Route: 065
  50. AMLODIPINE [Concomitant]
     Active Substance: AMLODIPINE BESYLATE
     Indication: CORONARY ARTERY DISEASE
     Dosage: UNK
     Route: 065
  51. DIPYRIDAMOLE. [Concomitant]
     Active Substance: DIPYRIDAMOLE
     Indication: CEREBROVASCULAR ACCIDENT
     Dosage: 200 MG, BID
     Route: 065
  52. LEVOFLOXACIN. [Concomitant]
     Active Substance: LEVOFLOXACIN
     Indication: URINARY TRACT INFECTION
     Dosage: 250 MG, QD
     Route: 065
  53. NITROGLYCERIN. [Concomitant]
     Active Substance: NITROGLYCERIN
     Indication: CORONARY ARTERY DISEASE
     Dosage: UNK
     Route: 062
  54. PHOSPHORIC ACID [Concomitant]
     Active Substance: PHOSPHORIC ACID
     Indication: PRODUCT USED FOR UNKNOWN INDICATION
     Dosage: UNK
     Route: 065

REACTIONS (9)
  - Balance disorder [Recovered/Resolved]
  - Orthostatic hypotension [Recovered/Resolved]
  - Cognitive disorder [Recovered/Resolved]
  - Dementia [Recovered/Resolved]
  - Sedation complication [Recovered/Resolved]
  - Creatinine renal clearance decreased [Recovered/Resolved]
  - Constipation [Recovered/Resolved]
  - Blood calcium decreased [Recovered/Resolved]
  - Bladder disorder [Recovered/Resolved]
